FAERS Safety Report 11419968 (Version 1)
Quarter: 2015Q3

REPORT INFORMATION
  Report Type: Spontaneous
  Country: DE (occurrence: DE)
  Receive Date: 20150826
  Receipt Date: 20150826
  Transmission Date: 20151125
  Serious: Yes (Other)
  Sender: FDA-Public Use
  Company Number: DE-PFIZER INC-2015278589

PATIENT
  Age: 60 Year
  Sex: Female
  Weight: 68 kg

DRUGS (2)
  1. EXEMESTANE. [Suspect]
     Active Substance: EXEMESTANE
     Indication: BREAST CANCER
  2. AFINITOR [Suspect]
     Active Substance: EVEROLIMUS
     Indication: BREAST CANCER
     Dosage: 10 MG, 1X/DAY
     Route: 048
     Dates: start: 201504, end: 20150604

REACTIONS (5)
  - Dysphagia [Recovered/Resolved]
  - Breast cancer [Recovering/Resolving]
  - Disease progression [Recovering/Resolving]
  - Arthralgia [Recovering/Resolving]
  - Odynophagia [Recovered/Resolved]

NARRATIVE: CASE EVENT DATE: 2015
